FAERS Safety Report 5232560-5 (Version None)
Quarter: 2007Q1

REPORT INFORMATION
  Report Type: 
  Country: None (occurrence: None)
  Receive Date: 20070207
  Receipt Date: 20070131
  Transmission Date: 20070707
  Serious: Yes (Hospitalization)
  Sender: FDA-Public Use
  Company Number: GB-GLAXOSMITHKLINE-B0457294A

PATIENT
  Age: 54 Year
  Sex: Female

DRUGS (3)
  1. PRIADEL [Suspect]
     Dosage: 400MG PER DAY
     Route: 048
     Dates: start: 20061205, end: 20061208
  2. VENLAFAXINE HCL [Concomitant]
     Indication: DEPRESSION
     Dosage: 150MG PER DAY
     Dates: start: 20061205, end: 20061208
  3. VENLAFAXINE HCL [Concomitant]
     Dosage: 225MG PER DAY

REACTIONS (1)
  - ECCHYMOSIS [None]
